FAERS Safety Report 17968384 (Version 3)
Quarter: 2025Q3

REPORT INFORMATION
  Report Type: Spontaneous
  Country: US (occurrence: US)
  Receive Date: 20200701
  Receipt Date: 20250821
  Transmission Date: 20251021
  Serious: No
  Sender: KYOWA
  Company Number: US-KYOWAKIRIN-2020BKK010802

PATIENT

DRUGS (1)
  1. CRYSVITA [Suspect]
     Active Substance: BUROSUMAB-TWZA
     Indication: Hereditary hypophosphataemic rickets
     Dosage: UNK, 1X/2 WEEKS
     Route: 065

REACTIONS (3)
  - Knee deformity [Not Recovered/Not Resolved]
  - Therapy interrupted [Not Recovered/Not Resolved]
  - Therapy interrupted [Not Recovered/Not Resolved]

NARRATIVE: CASE EVENT DATE: 20200601
